FAERS Safety Report 25083274 (Version 1)
Quarter: 2025Q1

REPORT INFORMATION
  Report Type: Spontaneous
  Country: US (occurrence: US)
  Receive Date: 20250317
  Receipt Date: 20250317
  Transmission Date: 20250409
  Serious: Yes (Other)
  Sender: DR REDDYS
  Company Number: US-DRL-USA-USA/2025/03/003886

PATIENT
  Age: 78 Year
  Sex: Female

DRUGS (2)
  1. SIROLIMUS [Suspect]
     Active Substance: SIROLIMUS
     Indication: Dermatomyositis
     Route: 048
  2. SIROLIMUS [Suspect]
     Active Substance: SIROLIMUS
     Route: 048

REACTIONS (2)
  - Renal failure [Unknown]
  - Product use in unapproved indication [Unknown]
